FAERS Safety Report 7349921-0 (Version None)
Quarter: 2011Q1

REPORT INFORMATION
  Report Type: 
  Country: None (occurrence: None)
  Receive Date: 20110314
  Receipt Date: 20110308
  Transmission Date: 20110831
  Serious: Yes (Hospitalization, Other)
  Sender: FDA-Public Use
  Company Number: US-ROCHE-761275

PATIENT
  Sex: Male
  Weight: 125 kg

DRUGS (16)
  1. RIBAVIRIN [Suspect]
     Indication: HEPATITIS C
     Route: 065
     Dates: start: 20110109, end: 20110221
  2. BACLOFEN [Concomitant]
     Route: 048
  3. OMEPRAZOLE [Concomitant]
  4. PROCRIT [Suspect]
     Dosage: DOSE: 4000 U
     Route: 058
     Dates: start: 20110215, end: 20110221
  5. SERTRALINE [Concomitant]
  6. PROAIR HFA [Concomitant]
  7. PRAZOSIN HCL [Concomitant]
  8. PRINZIDE [Concomitant]
     Dosage: DOSE: 12.5/20 MG, FREQUENCY: ONCE A DAY (QD).
     Route: 048
  9. NAPROXEN [Suspect]
     Dosage: DOSING REGIMEN: 500 (UNITS NOT PROVIDED) TWICE DAILY (BID) AS NECESSARY (PRN)
     Route: 048
     Dates: end: 20110221
  10. AMOXICILLIN [Concomitant]
  11. QVAR 40 [Concomitant]
  12. PRILOSEC [Concomitant]
     Dosage: DRUG REPORTED AS:PERLOSEC OTC
     Route: 048
  13. PEG-INTRON [Suspect]
     Dosage: FORM: PRE-FILLED SYRINGE, OTHER INDICATION: HCV
     Route: 058
     Dates: start: 20110109, end: 20110221
  14. HYDROCHLOROTHIAZIDE [Concomitant]
  15. RIBASPHERE [Concomitant]
  16. LISINOPRIL [Concomitant]

REACTIONS (4)
  - APPLICATION SITE HAEMATOMA [None]
  - INTRACRANIAL ANEURYSM [None]
  - HAEMOLYTIC ANAEMIA [None]
  - PRODUCT QUALITY ISSUE [None]
